FAERS Safety Report 9352598 (Version 2)
Quarter: 2016Q2

REPORT INFORMATION
  Report Type: Report from Study
  Country: US (occurrence: US)
  Receive Date: 20130618
  Receipt Date: 20160602
  Transmission Date: 20160815
  Serious: Yes (Death)
  Sender: FDA-Public Use
  Company Number: US-ROCHE-1236794

PATIENT
  Age: 62 Year
  Sex: Male

DRUGS (3)
  1. ACTIVASE [Suspect]
     Active Substance: ALTEPLASE
     Indication: THROMBOSIS
     Route: 040
     Dates: start: 20130122
  2. ACTIVASE [Suspect]
     Active Substance: ALTEPLASE
     Dosage: 20MG/500ML
     Route: 042
     Dates: start: 20130122
  3. ACTIVASE [Suspect]
     Active Substance: ALTEPLASE
     Indication: EMBOLISM ARTERIAL
     Route: 042
     Dates: start: 20130122

REACTIONS (4)
  - Thrombosis [Fatal]
  - Peripheral arterial occlusive disease [Fatal]
  - Embolism arterial [Fatal]
  - Cardiac failure [Fatal]

NARRATIVE: CASE EVENT DATE: 20130122
